FAERS Safety Report 24801729 (Version 1)
Quarter: 2025Q1

REPORT INFORMATION
  Report Type: Other
  Country: US (occurrence: US)
  Receive Date: 20250102
  Receipt Date: 20250102
  Transmission Date: 20250408
  Serious: Yes (Hospitalization, Other)
  Sender: HLS THERAPEUTICS
  Company Number: US-HLS-202400130

PATIENT
  Age: 20 Year
  Sex: Female

DRUGS (7)
  1. CLOZAPINE [Suspect]
     Active Substance: CLOZAPINE
     Indication: Mental disorder
     Route: 065
  2. CHLORPROMAZINE [Suspect]
     Active Substance: CHLORPROMAZINE
     Indication: Mental disorder
     Route: 065
  3. CITALOPRAM [Concomitant]
     Active Substance: CITALOPRAM
     Indication: Product used for unknown indication
     Route: 065
  4. BUPROPION [Concomitant]
     Active Substance: BUPROPION
     Indication: Product used for unknown indication
     Route: 065
  5. LITHIUM [Concomitant]
     Active Substance: LITHIUM
     Indication: Product used for unknown indication
     Route: 065
  6. LAMOTRIGINE [Concomitant]
     Active Substance: LAMOTRIGINE
     Indication: Product used for unknown indication
     Route: 065
  7. TOPIRAMATE [Concomitant]
     Active Substance: TOPIRAMATE
     Indication: Product used for unknown indication
     Route: 065

REACTIONS (3)
  - Agranulocytosis [Recovered/Resolved]
  - Neutropenia [Recovered/Resolved]
  - Sepsis [Recovered/Resolved]
